FAERS Safety Report 15601313 (Version 4)
Quarter: 2020Q1

REPORT INFORMATION
  Report Type: Report from Study
  Country: US (occurrence: US)
  Receive Date: 20181109
  Receipt Date: 20200311
  Transmission Date: 20200409
  Serious: Yes (Death, Hospitalization)
  Sender: FDA-Public Use
  Company Number: PHHO2018US011155

PATIENT
  Age: 19 Year
  Sex: Female
  Weight: 59.5 kg

DRUGS (3)
  1. VOTRIENT [Suspect]
     Active Substance: PAZOPANIB HYDROCHLORIDE
     Indication: SOFT TISSUE SARCOMA
     Dosage: 600 MG, QD (TOTAL DOSE 6600 MG)
     Route: 048
     Dates: start: 20180809, end: 20180901
  2. DOXORUBICIN [Suspect]
     Active Substance: DOXORUBICIN
     Indication: SOFT TISSUE SARCOMA
     Dosage: 37.5 MG/M2, QD
     Route: 042
     Dates: start: 20180809, end: 20180901
  3. IFOSFAMIDE. [Suspect]
     Active Substance: IFOSFAMIDE
     Indication: SOFT TISSUE SARCOMA
     Dosage: 2500 MG/M2, QD
     Route: 042
     Dates: start: 20180809, end: 20180901

REACTIONS (5)
  - Febrile neutropenia [Recovering/Resolving]
  - Wound dehiscence [Fatal]
  - Skin infection [Recovering/Resolving]
  - Neutrophil count decreased [Fatal]
  - Febrile neutropenia [Recovered/Resolved]

NARRATIVE: CASE EVENT DATE: 20180819
